FAERS Safety Report 4955410-0 (Version None)
Quarter: 2006Q1

REPORT INFORMATION
  Report Type: 
  Country: None (occurrence: None)
  Receive Date: 20060322
  Receipt Date: 20060310
  Transmission Date: 20060701
  Serious: Yes (Other)
  Sender: FDA-Public Use
  Company Number: 2006013777

PATIENT
  Age: 71 Year
  Sex: Female
  Weight: 77.1115 kg

DRUGS (7)
  1. QUINAPRIL HCL [Suspect]
     Indication: HYPERTENSION
     Dosage: 40 MG (40 MG, DAILY), ORAL
     Route: 048
     Dates: start: 20050101, end: 20060201
  2. TROVAN [Suspect]
     Indication: ILL-DEFINED DISORDER
  3. HYDROCHLOROTHIAZIDE [Concomitant]
  4. VITAMINS [Concomitant]
  5. ESTRACE [Concomitant]
  6. FLAXSEED OIL (LINSEED OIL) [Concomitant]
  7. GLUCOSAMINE W/CHONDROITIN SULFATES (ASCORBIC ACID, CHONDROITIN SULFATE [Concomitant]

REACTIONS (4)
  - COUGH [None]
  - DRUG HYPERSENSITIVITY [None]
  - PLATELET COUNT INCREASED [None]
  - RASH PRURITIC [None]
